FAERS Safety Report 14267749 (Version 1)
Quarter: 2017Q4

REPORT INFORMATION
  Report Type: Spontaneous
  Country: FR (occurrence: FR)
  Receive Date: 20171211
  Receipt Date: 20171211
  Transmission Date: 20180321
  Serious: Yes (Death)
  Sender: FDA-Public Use
  Company Number: PHHY2017FR181251

PATIENT
  Age: 50 Year
  Sex: Male

DRUGS (1)
  1. ARGANOVA [Suspect]
     Active Substance: ARGATROBAN
     Indication: HEPARIN-INDUCED THROMBOCYTOPENIA
     Route: 065

REACTIONS (3)
  - Overdose [Fatal]
  - Haemorrhage [Fatal]
  - Multiple organ dysfunction syndrome [Fatal]
